FAERS Safety Report 8366656-6 (Version None)
Quarter: 2012Q1

REPORT INFORMATION
  Report Type: 
  Country: None (occurrence: None)
  Receive Date: 20120323
  Receipt Date: 20110523
  Transmission Date: 20120608
  Serious: Yes (Hospitalization, Other)
  Sender: FDA-Public Use
  Company Number: 163-21880-11041231

PATIENT
  Age: 71 Year
  Sex: Female
  Weight: 115.6 kg

DRUGS (19)
  1. REVLIMID [Suspect]
     Indication: MULTIPLE MYELOMA
     Dosage: 25 MG, 1 IN 1 D, PO ; 15 MG, 1 IN 1 D, PO ; 10 MG, 1 IN 1 D, PO ; 10 MG, 1 IN 1 D, PO
     Route: 048
     Dates: start: 20100629
  2. REVLIMID [Suspect]
     Indication: MULTIPLE MYELOMA
     Dosage: 25 MG, 1 IN 1 D, PO ; 15 MG, 1 IN 1 D, PO ; 10 MG, 1 IN 1 D, PO ; 10 MG, 1 IN 1 D, PO
     Route: 048
     Dates: start: 20110401
  3. REVLIMID [Suspect]
     Indication: MULTIPLE MYELOMA
     Dosage: 25 MG, 1 IN 1 D, PO ; 15 MG, 1 IN 1 D, PO ; 10 MG, 1 IN 1 D, PO ; 10 MG, 1 IN 1 D, PO
     Route: 048
     Dates: start: 20090731, end: 20100202
  4. REVLIMID [Suspect]
     Indication: MULTIPLE MYELOMA
     Dosage: 25 MG, 1 IN 1 D, PO ; 15 MG, 1 IN 1 D, PO ; 10 MG, 1 IN 1 D, PO ; 10 MG, 1 IN 1 D, PO
     Route: 048
     Dates: start: 20100720, end: 20110401
  5. CLONIDINE [Concomitant]
  6. LOSARTAN POTASSIUM [Concomitant]
  7. OXYCONTIN [Concomitant]
  8. SERTRALINE HYDROCHLORIDE [Concomitant]
  9. ASPIRIN [Concomitant]
  10. CALCIUM CARBONATE [Concomitant]
  11. COUMADIN [Concomitant]
  12. FUROSEMIDE [Concomitant]
  13. FERROUS SULFATE TAB [Concomitant]
  14. GABAPENTIN [Concomitant]
  15. VITAMIN D [Concomitant]
  16. SPIRIVA [Concomitant]
  17. OXYCODONE HCL [Concomitant]
  18. DEXAMETHASONE [Concomitant]
  19. SIMVASTATIN [Concomitant]

REACTIONS (4)
  - DEEP VEIN THROMBOSIS [None]
  - RENAL FAILURE [None]
  - PYREXIA [None]
  - ASTHENIA [None]
